FAERS Safety Report 4622987-4 (Version None)
Quarter: 2005Q1

REPORT INFORMATION
  Report Type: 
  Country: None (occurrence: None)
  Receive Date: 20050329
  Receipt Date: 20050225
  Transmission Date: 20050727
  Serious: Yes (Hospitalization)
  Sender: FDA-Public Use
  Company Number: 10449

PATIENT
  Sex: Female

DRUGS (2)
  1. METHOTREXATE [Suspect]
     Dosage: 20 MG WEEKLY; SC
     Route: 058
     Dates: start: 19940901, end: 20010701
  2. ETANERCEPT [Concomitant]

REACTIONS (4)
  - ARTHRITIS [None]
  - CONDITION AGGRAVATED [None]
  - ILL-DEFINED DISORDER [None]
  - UNEVALUABLE EVENT [None]
